FAERS Safety Report 5010884-4 (Version None)
Quarter: 2006Q2

REPORT INFORMATION
  Report Type: 
  Country: None (occurrence: None)
  Receive Date: 20060525
  Receipt Date: 20060517
  Transmission Date: 20061013
  Serious: Yes (Other)
  Sender: FDA-Public Use
  Company Number: US-JNJFOC-20060503893

PATIENT
  Sex: Male

DRUGS (5)
  1. REMICADE [Suspect]
     Indication: RHEUMATOID ARTHRITIS
     Route: 042
  2. THYROID TAB [Concomitant]
  3. MAALOX FAST BLOCKER [Concomitant]
  4. MAALOX FAST BLOCKER [Concomitant]
  5. PEPTO BISMOL [Concomitant]

REACTIONS (3)
  - LUNG NEOPLASM [None]
  - LYMPHADENOPATHY [None]
  - PULMONARY MASS [None]
